FAERS Safety Report 9603702 (Version 1)
Quarter: 2013Q4

REPORT INFORMATION
  Report Type: Spontaneous
  Country: IN (occurrence: IN)
  Receive Date: 20131007
  Receipt Date: 20131007
  Transmission Date: 20140711
  Serious: Yes (Other)
  Sender: FDA-Public Use
  Company Number: PHHY2013IN110006

PATIENT
  Age: 18 Year
  Sex: Male

DRUGS (3)
  1. VINCRISTINE [Suspect]
     Indication: LYMPHOCYTIC LEUKAEMIA
     Dosage: 2 MG/DOSE
     Route: 042
  2. METHOTREXATE [Suspect]
     Indication: LYMPHOCYTIC LEUKAEMIA
  3. CYTARABINE [Suspect]
     Indication: LYMPHOCYTIC LEUKAEMIA
     Route: 037

REACTIONS (16)
  - Neuropathy peripheral [Unknown]
  - Splenic abscess [Unknown]
  - Abdominal pain [Recovering/Resolving]
  - Pyrexia [Unknown]
  - Pleural effusion [Unknown]
  - Hypokalaemia [Unknown]
  - Hypomagnesaemia [Unknown]
  - Central nervous system lesion [Unknown]
  - Axonal neuropathy [Unknown]
  - Grand mal convulsion [Unknown]
  - Peroneal nerve palsy [Recovering/Resolving]
  - Neuralgia [Unknown]
  - Vision blurred [Unknown]
  - Pain in extremity [Unknown]
  - Headache [Recovering/Resolving]
  - Oedema [Unknown]
